FAERS Safety Report 9415197 (Version 1)
Quarter: 2013Q3

REPORT INFORMATION
  Report Type: Spontaneous
  Country: US (occurrence: US)
  Receive Date: 20130723
  Receipt Date: 20130723
  Transmission Date: 20140515
  Serious: Yes (Hospitalization)
  Sender: FDA-Public Use
  Company Number: US-B.I. PHARMACEUTICALS,INC./RIDGEFIELD-2013-BI-21285PF

PATIENT
  Sex: Male

DRUGS (4)
  1. SPIRIVA [Suspect]
  2. GEODON [Suspect]
     Indication: POST-TRAUMATIC STRESS DISORDER
     Dosage: 60 MG
  3. GEODON [Suspect]
     Indication: DEPRESSION
  4. LANTUS [Concomitant]
     Indication: TYPE 2 DIABETES MELLITUS
     Dosage: 40 U

REACTIONS (2)
  - Mood swings [Unknown]
  - Post-traumatic stress disorder [Unknown]
